FAERS Safety Report 9849379 (Version 1)
Quarter: 2014Q1

REPORT INFORMATION
  Report Type: Spontaneous
  Country: US (occurrence: None)
  Receive Date: 20140124
  Receipt Date: 20140124
  Transmission Date: 20141002
  Serious: Yes (Disabling, Other)
  Sender: FDA-Public Use
  Company Number: None

PATIENT
  Age: 60 Year
  Sex: Female
  Weight: 185.98 kg

DRUGS (19)
  1. LEVOFLOXACIN [Suspect]
     Indication: SIALOADENITIS
     Route: 048
     Dates: start: 20131230, end: 20140102
  2. HUMULIN [Concomitant]
  3. ACTOS [Concomitant]
  4. DIOVAN [Concomitant]
  5. TORSEMIDE [Concomitant]
  6. POTASSIUM CL [Concomitant]
  7. LOVASTATIN [Concomitant]
  8. OMEPRAZOLE [Concomitant]
  9. SPIROLOLACTONE [Concomitant]
  10. VITAMIN D [Concomitant]
  11. VITAMIN C [Concomitant]
  12. VITAMIN E [Concomitant]
  13. FISH OIL [Concomitant]
  14. LOW DOSE ASPIRIN [Concomitant]
  15. MULTIVITAMIN WITH IRON [Concomitant]
  16. B COMPLEX [Concomitant]
  17. ALLEGRA [Concomitant]
  18. CALCIUM-MAGNESIUM [Suspect]
  19. COSAMIN DS (GLUCOSAMINE HCL AND CHONDROITIN SULFATE) [Concomitant]

REACTIONS (5)
  - Pain in extremity [None]
  - Chills [None]
  - Pyrexia [None]
  - Skin exfoliation [None]
  - Skin lesion [None]
